FAERS Safety Report 6901407-0 (Version None)
Quarter: 2010Q3

REPORT INFORMATION
  Report Type: 
  Country: None (occurrence: None)
  Receive Date: 20100803
  Receipt Date: 20080321
  Transmission Date: 20110219
  Serious: No
  Sender: FDA-Public Use
  Company Number: US-PFIZER INC-2008010552

PATIENT
  Sex: Female

DRUGS (3)
  1. LYRICA [Suspect]
     Indication: ORAL DISCOMFORT
  2. LYRICA [Suspect]
     Indication: NECK PAIN
  3. LYRICA [Suspect]
     Indication: MUSCULOSKELETAL PAIN

REACTIONS (7)
  - ABDOMINAL DISTENSION [None]
  - BLOOD PRESSURE DECREASED [None]
  - DRY MOUTH [None]
  - FATIGUE [None]
  - SOMNOLENCE [None]
  - THIRST [None]
  - WEIGHT INCREASED [None]
